FAERS Safety Report 11231321 (Version 1)
Quarter: 2015Q3

REPORT INFORMATION
  Report Type: Spontaneous
  Country: FR (occurrence: FR)
  Receive Date: 20150701
  Receipt Date: 20150701
  Transmission Date: 20151125
  Serious: Yes (Hospitalization, Other)
  Sender: FDA-Public Use
  Company Number: FR-ABBVIE-11P-056-0883187-00

PATIENT
  Age: 44 Year
  Sex: Male

DRUGS (3)
  1. HUMIRA [Suspect]
     Active Substance: ADALIMUMAB
     Indication: ANKYLOSING SPONDYLITIS
     Route: 058
     Dates: start: 201005, end: 20111107
  2. VEXOL [Concomitant]
     Active Substance: RIMEXOLONE
     Indication: PRODUCT USED FOR UNKNOWN INDICATION
  3. COSOPT [Concomitant]
     Active Substance: DORZOLAMIDE HYDROCHLORIDE\TIMOLOL MALEATE
     Indication: PRODUCT USED FOR UNKNOWN INDICATION

REACTIONS (16)
  - Autoantibody positive [Unknown]
  - Circulating anticoagulant positive [Not Recovered/Not Resolved]
  - Antiphospholipid antibodies positive [Unknown]
  - Leukocytosis [Unknown]
  - Antinuclear antibody positive [Unknown]
  - Ecchymosis [Unknown]
  - Epistaxis [Unknown]
  - Asthenia [Unknown]
  - C-reactive protein increased [Unknown]
  - Haemoptysis [Unknown]
  - Immune thrombocytopenic purpura [Recovered/Resolved]
  - Bronchitis [Unknown]
  - Cardiolipin antibody positive [Unknown]
  - DNA antibody positive [Unknown]
  - Unevaluable event [Unknown]
  - Deep vein thrombosis [Recovered/Resolved]

NARRATIVE: CASE EVENT DATE: 201106
